FAERS Safety Report 5494152-2 (Version None)
Quarter: 2007Q4

REPORT INFORMATION
  Report Type: 
  Country: None (occurrence: None)
  Receive Date: 20071024
  Receipt Date: 20071012
  Transmission Date: 20080405
  Serious: Yes (Hospitalization)
  Sender: FDA-Public Use
  Company Number: PHHO2007DE12364

PATIENT
  Age: 66 Year
  Sex: Male
  Weight: 70 kg

DRUGS (3)
  1. IBUPROFEN [Concomitant]
  2. RAD001 [Suspect]
     Indication: GASTROINTESTINAL CARCINOMA
     Dosage: 2.5 MG, QD
     Route: 048
     Dates: start: 20070620, end: 20070726
  3. GLEEVEC [Suspect]
     Indication: GASTROINTESTINAL STROMAL TUMOUR
     Dosage: 600 MG, QD
     Route: 048
     Dates: start: 20070620, end: 20070726

REACTIONS (6)
  - DISEASE PROGRESSION [None]
  - IMPAIRED HEALING [None]
  - METASTASES TO SPINE [None]
  - MUSCULOSKELETAL PAIN [None]
  - SPINAL OPERATION [None]
  - WOUND TREATMENT [None]
